FAERS Safety Report 17711855 (Version 1)
Quarter: 2020Q2

REPORT INFORMATION
  Report Type: Spontaneous
  Country: AU (occurrence: AU)
  Receive Date: 20200427
  Receipt Date: 20200427
  Transmission Date: 20200714
  Serious: Yes (Disabling, Other)
  Sender: FDA-Public Use
  Company Number: AU-MYLANLABS-2020M1040965

PATIENT
  Age: 36 Year
  Sex: Male

DRUGS (2)
  1. CLOZARIL [Suspect]
     Active Substance: CLOZAPINE
     Dosage: UNK
     Route: 048
     Dates: start: 20190408
  2. CLOZARIL [Suspect]
     Active Substance: CLOZAPINE
     Indication: SCHIZOPHRENIA
     Dosage: UNK
     Route: 048

REACTIONS (9)
  - Mean cell haemoglobin concentration decreased [Recovered/Resolved]
  - Neutrophil count increased [Recovered/Resolved]
  - Intellectual disability [Unknown]
  - Anaemia [Recovering/Resolving]
  - Microcytosis [Unknown]
  - Red cell distribution width increased [Not Recovered/Not Resolved]
  - Mean cell haemoglobin decreased [Recovering/Resolving]
  - Mean cell volume decreased [Not Recovered/Not Resolved]
  - Monocyte count increased [Recovered/Resolved]

NARRATIVE: CASE EVENT DATE: 20190722
